FAERS Safety Report 8143766 (Version 5)
Quarter: 2013Q2

REPORT INFORMATION
  Report Type: Report from Study
  Country: DE (occurrence: DE)
  Receive Date: 20110920
  Receipt Date: 20130613
  Transmission Date: 20140414
  Serious: Yes (Life-Threatening)
  Sender: FDA-Public Use
  Company Number: DE-CELGENEUS-062-50794-11091527

PATIENT
  Age: 61 Year
  Sex: Male
  Weight: 111.5 kg

DRUGS (1)
  1. VIDAZA [Suspect]
     Indication: ACUTE MYELOID LEUKAEMIA
     Dosage: 156.76 MILLIGRAM
     Route: 041
     Dates: start: 20110909

REACTIONS (2)
  - Pneumonia [Recovered/Resolved]
  - Febrile neutropenia [Not Recovered/Not Resolved]
